FAERS Safety Report 25613757 (Version 3)
Quarter: 2025Q3

REPORT INFORMATION
  Report Type: Spontaneous
  Country: AU (occurrence: AU)
  Receive Date: 20250728
  Receipt Date: 20250829
  Transmission Date: 20251020
  Serious: Yes (Hospitalization)
  Sender: MYLAN
  Company Number: AU-002147023-PHHY2012AU055413

PATIENT
  Age: 26 Year
  Sex: Male

DRUGS (10)
  1. CLOZARIL [Suspect]
     Active Substance: CLOZAPINE
     Indication: Schizophrenia
  2. CLOZARIL [Suspect]
     Active Substance: CLOZAPINE
  3. CLOZARIL [Suspect]
     Active Substance: CLOZAPINE
  4. TEMAZEPAM [Concomitant]
     Active Substance: TEMAZEPAM
  5. VALPROATE SODIUM [Concomitant]
     Active Substance: VALPROATE SODIUM
     Dosage: UNK, BID (500MG MIDDAY AND 1000MG AT NIGHT)
  6. DULOXETINE [Concomitant]
     Active Substance: DULOXETINE
     Dosage: 60 MILLIGRAM, AM (IN MORNING)
  7. NICOTINE [Concomitant]
     Active Substance: NICOTINE
  8. LEVOTHYROXINE [Concomitant]
     Active Substance: LEVOTHYROXINE
     Indication: Neoplasm malignant
     Dosage: 200 MICROGRAM, AM (IN MORNING)
  9. HALOPERIDOL [Concomitant]
     Active Substance: HALOPERIDOL
     Dosage: 5 MILLIGRAM, BID (BD; STARTED DURING CURRENT ADMISSION)
  10. BISOPROLOL [Concomitant]
     Active Substance: BISOPROLOL
     Dosage: 5 MILLIGRAM, QD (DAILY)

REACTIONS (5)
  - Priapism [Recovered/Resolved]
  - Ejection fraction decreased [Recovering/Resolving]
  - Non-cardiac chest pain [Unknown]
  - Palpitations [Unknown]
  - Orthostatic hypotension [Unknown]

NARRATIVE: CASE EVENT DATE: 20111227
